FAERS Safety Report 18237582 (Version 1)
Quarter: 2020Q3

REPORT INFORMATION
  Report Type: Spontaneous
  Country: CN (occurrence: CN)
  Receive Date: 20200907
  Receipt Date: 20200907
  Transmission Date: 20201103
  Serious: Yes (Hospitalization, Other)
  Sender: FDA-Public Use
  Company Number: CN-PFIZER INC-2020341249

PATIENT
  Age: 65 Year
  Sex: Male
  Weight: 62 kg

DRUGS (5)
  1. GLUCOSE [Concomitant]
     Active Substance: DEXTROSE
     Indication: VEHICLE SOLUTION USE
     Dosage: 100 ML, 1X/DAY
     Route: 041
     Dates: start: 20200713, end: 20200716
  2. PHARMORUBICIN [Suspect]
     Active Substance: EPIRUBICIN
     Indication: PLASMA CELL MYELOMA
     Dosage: 20 MG, 1X/DAY
     Route: 041
     Dates: start: 20200713, end: 20200716
  3. SODIUM CHLORIDE. [Concomitant]
     Active Substance: SODIUM CHLORIDE
     Indication: VEHICLE SOLUTION USE
     Dosage: 100 ML, 2X/DAY
     Route: 041
     Dates: start: 20200713, end: 20200716
  4. VINCRISTINE SULFATE. [Suspect]
     Active Substance: VINCRISTINE SULFATE
     Indication: PLASMA CELL MYELOMA
     Dosage: 0.4 MG, 1X/DAY
     Route: 041
     Dates: start: 20200713, end: 20200716
  5. DEXAMETHASONE SODIUM PHOSPHATE. [Concomitant]
     Active Substance: DEXAMETHASONE SODIUM PHOSPHATE
     Indication: PLASMA CELL MYELOMA
     Dosage: 40 MG, 1X/DAY
     Route: 041
     Dates: start: 20200713, end: 20200716

REACTIONS (5)
  - Pyrexia [Recovered/Resolved]
  - White blood cell count decreased [Recovering/Resolving]
  - Tachypnoea [Recovered/Resolved]
  - Neutrophil count decreased [Recovering/Resolving]
  - Dyspnoea [Recovering/Resolving]

NARRATIVE: CASE EVENT DATE: 20200727
